FAERS Safety Report 5794373-5 (Version None)
Quarter: 2008Q2

REPORT INFORMATION
  Report Type: 
  Country: None (occurrence: None)
  Receive Date: 20080616
  Receipt Date: 20080205
  Transmission Date: 20081010
  Serious: Yes (Death, Hospitalization, Other)
  Sender: FDA-Public Use
  Company Number: THYM-1000707

PATIENT
  Age: 24 Year
  Sex: Male
  Weight: 69.8 kg

DRUGS (11)
  1. THYMOGLOBULIN [Suspect]
     Indication: ACUTE MYELOID LEUKAEMIA
     Dosage: 1 MG/M2, ONCE, INTRAVENOUS; 2.5 MG/M2, QD, INTRAVENOUS
     Route: 042
     Dates: start: 20080125, end: 20080125
  2. THYMOGLOBULIN [Suspect]
     Indication: ACUTE MYELOID LEUKAEMIA
     Dosage: 1 MG/M2, ONCE, INTRAVENOUS; 2.5 MG/M2, QD, INTRAVENOUS
     Route: 042
     Dates: start: 20080126, end: 20080127
  3. CYTARABINE [Suspect]
     Indication: ACUTE MYELOID LEUKAEMIA
     Dosage: 1 G/M2, QD, INTRAVENOUS
     Route: 042
     Dates: start: 20080123, end: 20080227
  4. PREDNISOLONE ACETATE [Suspect]
     Indication: IMMUNOSUPPRESSION
     Dosage: 10 MG, QD, ORAL
     Route: 048
     Dates: start: 20080201, end: 20080213
  5. CLOFARABINE (CLOFARABINE) [Concomitant]
  6. ACETAMINOPHEN [Concomitant]
  7. ALBUTEROL (SALBUTAMOL SULFATE) [Concomitant]
  8. LORAZEPAM [Concomitant]
  9. COMPAZINE (PROCHLORPERAZINE MALEATE) [Concomitant]
  10. BENZONATATE [Concomitant]
  11. DILAUDID [Concomitant]

REACTIONS (17)
  - ANURIA [None]
  - BACTERIAL INFECTION [None]
  - BLOOD CREATININE INCREASED [None]
  - CEREBRAL HAEMORRHAGE [None]
  - CEREBRAL INFARCTION [None]
  - ENTEROCOCCAL INFECTION [None]
  - FUNGAL ABSCESS CENTRAL NERVOUS SYSTEM [None]
  - GRAND MAL CONVULSION [None]
  - HEADACHE [None]
  - HEMIANOPIA [None]
  - HYPERBILIRUBINAEMIA [None]
  - HYPOTENSION [None]
  - MENTAL IMPAIRMENT [None]
  - MULTI-ORGAN FAILURE [None]
  - MUSCULAR WEAKNESS [None]
  - RESPIRATORY FAILURE [None]
  - SEPTIC EMBOLUS [None]
